FAERS Safety Report 5818769-8 (Version None)
Quarter: 2008Q3

REPORT INFORMATION
  Report Type: 
  Country: None (occurrence: None)
  Receive Date: 20080721
  Receipt Date: 20080721
  Transmission Date: 20090109
  Serious: No
  Sender: FDA-Public Use
  Company Number: None

PATIENT
  Sex: Female

DRUGS (2)
  1. PEG-INTRON [Suspect]
     Dosage: INJECT PEG-INTERON 0.5ML SUB-O WEEKLY SQ
     Route: 058
  2. RIBAVIRIN [Suspect]
     Dosage: RIBAVIRIN 400MG -2 TABLETS TWICE DAILY PO
     Route: 048

REACTIONS (1)
  - FATIGUE [None]
